FAERS Safety Report 5452196-0 (Version None)
Quarter: 2007Q3

REPORT INFORMATION
  Report Type: 
  Country: None (occurrence: None)
  Receive Date: 20070914
  Receipt Date: 20070906
  Transmission Date: 20080115
  Serious: Yes (Other)
  Sender: FDA-Public Use
  Company Number: PHBS2007JP14349

PATIENT
  Age: 61 Year
  Sex: Female

DRUGS (3)
  1. ZOLEDRONIC ACID [Suspect]
     Indication: METASTASES TO LUNG
     Dosage: 4 MG, UNK
     Route: 042
  2. BISPHONAL [Concomitant]
     Indication: METASTASES TO LUNG
     Dosage: 10 MG, UNK
     Route: 042
  3. PAMIDRONATE DISODIUM [Suspect]
     Indication: METASTASES TO LUNG
     Dosage: 90 MG, UNK
     Route: 042

REACTIONS (7)
  - ALVEOLAR OSTEITIS [None]
  - HYPERBARIC OXYGEN THERAPY [None]
  - OSTEOMYELITIS [None]
  - OSTEONECROSIS [None]
  - SEQUESTRECTOMY [None]
  - TOOTH EXTRACTION [None]
  - TOOTHACHE [None]
